FAERS Safety Report 17790421 (Version 1)
Quarter: 2020Q2

REPORT INFORMATION
  Report Type: Spontaneous
  Country: US (occurrence: US)
  Receive Date: 20200514
  Receipt Date: 20200514
  Transmission Date: 20200714
  Serious: No
  Sender: FDA-Public Use
  Company Number: US-ELI_LILLY_AND_COMPANY-US202005004547

PATIENT
  Age: 56 Year
  Sex: Male

DRUGS (4)
  1. TALTZ [Suspect]
     Active Substance: IXEKIZUMAB
     Indication: PSORIATIC ARTHROPATHY
  2. TALTZ [Suspect]
     Active Substance: IXEKIZUMAB
     Indication: PSORIASIS
     Dosage: UNK, UNKNOWN
     Route: 058
     Dates: start: 202002
  3. TALTZ [Suspect]
     Active Substance: IXEKIZUMAB
     Indication: PSORIASIS
     Dosage: UNK, UNKNOWN
     Route: 058
     Dates: start: 202002
  4. TALTZ [Suspect]
     Active Substance: IXEKIZUMAB
     Indication: PSORIATIC ARTHROPATHY

REACTIONS (6)
  - Gingival blister [Unknown]
  - Fatigue [Unknown]
  - Drug ineffective [Unknown]
  - Oral fungal infection [Not Recovered/Not Resolved]
  - Malaise [Unknown]
  - Mouth swelling [Unknown]

NARRATIVE: CASE EVENT DATE: 202003
